FAERS Safety Report 4385404-8 (Version None)
Quarter: 2004Q2

REPORT INFORMATION
  Report Type: 
  Country: None (occurrence: None)
  Receive Date: 20040622
  Receipt Date: 20040609
  Transmission Date: 20050107
  Serious: Yes (Hospitalization, Disabling)
  Sender: FDA-Public Use
  Company Number: 9909603

PATIENT
  Age: 64 Year
  Sex: Male
  Weight: 79.3795 kg

DRUGS (7)
  1. VIAGRA [Suspect]
     Indication: ERECTILE DYSFUNCTION
     Dosage: 25 MG (AS NEEDED) , ORAL
     Route: 048
     Dates: start: 19971201
  2. MICRONASE [Concomitant]
  3. COLESTID [Concomitant]
  4. VITAMINS (VITAMINS) [Concomitant]
  5. LOPID [Concomitant]
  6. CARDIZEM [Concomitant]
  7. LUPRON [Concomitant]

REACTIONS (7)
  - BLINDNESS TRANSIENT [None]
  - CEREBROVASCULAR ACCIDENT [None]
  - DRUG INEFFECTIVE [None]
  - HEMIANOPIA [None]
  - PHARMACEUTICAL PRODUCT COMPLAINT [None]
  - SCOTOMA [None]
  - VISUAL ACUITY REDUCED [None]
